FAERS Safety Report 10314723 (Version 2)
Quarter: 2014Q3

REPORT INFORMATION
  Report Type: Spontaneous
  Country: JP (occurrence: JP)
  Receive Date: 20140718
  Receipt Date: 20140808
  Transmission Date: 20150326
  Serious: Yes (Hospitalization, Other)
  Sender: FDA-Public Use
  Company Number: JP-ABBVIE-14P-087-1259367-00

PATIENT
  Age: 30 Year
  Sex: Female

DRUGS (3)
  1. HUMIRA [Suspect]
     Active Substance: ADALIMUMAB
     Indication: CROHN^S DISEASE
     Route: 058
  2. HUMIRA [Suspect]
     Active Substance: ADALIMUMAB
  3. HUMIRA [Suspect]
     Active Substance: ADALIMUMAB

REACTIONS (7)
  - Inflammatory marker increased [Unknown]
  - Caesarean section [Unknown]
  - Procedural haemorrhage [Unknown]
  - Therapeutic response decreased [Unknown]
  - Enterostomy [Unknown]
  - Abdominal pain [Unknown]
  - Small intestinal resection [Unknown]

NARRATIVE: CASE EVENT DATE: 201208
